FAERS Safety Report 4564388-3 (Version None)
Quarter: 2005Q1

REPORT INFORMATION
  Report Type: 
  Country: None (occurrence: None)
  Receive Date: 20050128
  Receipt Date: 20050124
  Transmission Date: 20050727
  Serious: Yes (Other)
  Sender: FDA-Public Use
  Company Number: DE-GLAXOSMITHKLINE-D0045710A

PATIENT

DRUGS (1)
  1. LEUKERAN [Suspect]
     Indication: CHRONIC LYMPHOCYTIC LEUKAEMIA
     Route: 048

REACTIONS (5)
  - CHOLESTASIS [None]
  - HEPATITIS [None]
  - JAUNDICE [None]
  - LYMPHOMA [None]
  - TRANSAMINASES INCREASED [None]
